FAERS Safety Report 9138227 (Version 1)
Quarter: 2013Q1

REPORT INFORMATION
  Report Type: Spontaneous
  Country: US (occurrence: US)
  Receive Date: 20130305
  Receipt Date: 20130305
  Transmission Date: 20140127
  Serious: Yes (Death, Other)
  Sender: FDA-Public Use
  Company Number: US-ASTRAZENECA-2013SE14291

PATIENT
  Sex: Male

DRUGS (1)
  1. CRESTOR [Suspect]
     Indication: BLOOD CHOLESTEROL INCREASED
     Route: 048

REACTIONS (7)
  - Sudden cardiac death [Fatal]
  - Myocardial infarction [Unknown]
  - Cardiomyopathy [Unknown]
  - Rhabdomyolysis [Unknown]
  - Renal disorder [Unknown]
  - Liver injury [Unknown]
  - Type 2 diabetes mellitus [Unknown]
